FAERS Safety Report 5351403-2 (Version None)
Quarter: 2007Q2

REPORT INFORMATION
  Report Type: 
  Country: None (occurrence: None)
  Receive Date: 20070608
  Receipt Date: 20070531
  Transmission Date: 20071010
  Serious: Yes (Other)
  Sender: FDA-Public Use
  Company Number: JP-PFIZER INC-2007045881

PATIENT
  Age: 83 Year
  Sex: Female

DRUGS (3)
  1. DIFLUCAN [Suspect]
     Dosage: DAILY DOSE:100MG
     Route: 048
     Dates: start: 20070518, end: 20070523
  2. BAKTAR [Concomitant]
     Route: 048
  3. PREDONINE [Concomitant]

REACTIONS (1)
  - RENAL FAILURE [None]
